FAERS Safety Report 24359887 (Version 1)
Quarter: 2024Q3

REPORT INFORMATION
  Report Type: Spontaneous
  Country: US (occurrence: US)
  Receive Date: 20240924
  Receipt Date: 20240924
  Transmission Date: 20241017
  Serious: Yes (Life-Threatening, Hospitalization)
  Sender: ABBVIE
  Company Number: US-TEVA-VS-3244817

PATIENT
  Age: 3 Decade
  Sex: Male

DRUGS (1)
  1. TESTOSTERONE [Suspect]
     Active Substance: TESTOSTERONE
     Indication: Blood testosterone decreased
     Route: 062

REACTIONS (3)
  - Superficial vein thrombosis [Recovering/Resolving]
  - Pulmonary embolism [Recovering/Resolving]
  - Deep vein thrombosis [Recovering/Resolving]
